FAERS Safety Report 25524179 (Version 2)
Quarter: 2025Q3

REPORT INFORMATION
  Report Type: Spontaneous
  Country: EU (occurrence: EU)
  Receive Date: 20250707
  Receipt Date: 20250709
  Transmission Date: 20251020
  Serious: Yes (Life-Threatening, Hospitalization, Other)
  Sender: SANOFI AVENTIS
  Company Number: EU-MLMSERVICE-20250626-PI556249-00077-1

PATIENT
  Age: 65 Year
  Sex: Male

DRUGS (6)
  1. CAPECITABINE [Suspect]
     Active Substance: CAPECITABINE
     Indication: Rectal adenocarcinoma
     Dosage: 2000 MG, Q12H, EVERYDAY DOSE OF 1000 MG/M2, WHICH MEANS A PATIENT DAILY DOSE OF 4000 MG FOR 14 DAYS
     Dates: start: 20230918
  2. CAPECITABINE [Suspect]
     Active Substance: CAPECITABINE
     Indication: Adenocarcinoma of colon
  3. CAPECITABINE [Suspect]
     Active Substance: CAPECITABINE
     Indication: Colon cancer stage III
  4. OXALIPLATIN [Suspect]
     Active Substance: OXALIPLATIN
     Indication: Rectal adenocarcinoma
     Dosage: 130 MG/M2, QD, AT 2-HOUR INTRAVENOUS INFUSION ON DAY 1
     Route: 041
     Dates: start: 20230918
  5. OXALIPLATIN [Suspect]
     Active Substance: OXALIPLATIN
     Indication: Adenocarcinoma of colon
  6. OXALIPLATIN [Suspect]
     Active Substance: OXALIPLATIN
     Indication: Colon cancer stage III

REACTIONS (12)
  - Cardiotoxicity [Recovered/Resolved]
  - Arteriospasm coronary [Recovered/Resolved]
  - Left ventricular dysfunction [Recovered/Resolved]
  - Ventricular arrhythmia [Recovered/Resolved]
  - Acute myocardial infarction [Recovered/Resolved]
  - Atrial fibrillation [Recovered/Resolved]
  - Chest pain [Recovered/Resolved]
  - Akinesia [Recovered/Resolved]
  - Ventricular tachycardia [Recovered/Resolved]
  - Heart failure with reduced ejection fraction [Recovered/Resolved]
  - Ventricular fibrillation [Recovered/Resolved]
  - Vasospasm [Recovered/Resolved]

NARRATIVE: CASE EVENT DATE: 20230922
